FAERS Safety Report 23986503 (Version 1)
Quarter: 2024Q2

REPORT INFORMATION
  Report Type: Spontaneous
  Country: US (occurrence: None)
  Receive Date: 20240617
  Receipt Date: 20240617
  Transmission Date: 20240716
  Serious: Yes (Death)
  Sender: FDA-Public Use
  Company Number: None

PATIENT
  Age: 3 Year
  Sex: Female
  Weight: 15.97 kg

DRUGS (8)
  1. IWILFIN [Suspect]
     Active Substance: EFLORNITHINE HYDROCHLORIDE
     Indication: Brain neoplasm malignant
     Dosage: FREQUENCY : TWICE A DAY;?
     Route: 048
  2. Acetaminophen Children^s Oral Suspension [Concomitant]
  3. DEXAMETHASONE [Concomitant]
  4. Clobazam Oral Suspension [Concomitant]
  5. Diazepam Rectal Gel [Concomitant]
  6. Lacosamide Oral Solution [Concomitant]
  7. SCOPOLAMINE TRANDERMAL SYSTEM [Concomitant]
     Active Substance: SCOPOLAMINE
  8. Bactrim Suspension [Concomitant]

REACTIONS (1)
  - Death [None]

NARRATIVE: CASE EVENT DATE: 20240615
